FAERS Safety Report 23534485 (Version 3)
Quarter: 2024Q3

REPORT INFORMATION
  Report Type: Report from Study
  Country: CA (occurrence: CA)
  Receive Date: 20240217
  Receipt Date: 20240710
  Transmission Date: 20241017
  Serious: Yes (Other)
  Sender: ABBVIE
  Company Number: CA-ABBVIE-5641735

PATIENT
  Age: 75 Year
  Sex: Female

DRUGS (3)
  1. SKYRIZI [Suspect]
     Active Substance: RISANKIZUMAB-RZAA
     Indication: Crohn^s disease
     Route: 058
     Dates: start: 20230927
  2. SKYRIZI [Suspect]
     Active Substance: RISANKIZUMAB-RZAA
     Route: 058
     Dates: end: 20240409
  3. CORTISONE [Concomitant]
     Active Substance: CORTISONE
     Indication: Product used for unknown indication

REACTIONS (2)
  - Breast cancer female [Recovering/Resolving]
  - Gastrointestinal disorder [Unknown]

NARRATIVE: CASE EVENT DATE: 20230901
